FAERS Safety Report 10983524 (Version 1)
Quarter: 2015Q2

REPORT INFORMATION
  Report Type: Report from Study
  Country: US (occurrence: US)
  Receive Date: 20150403
  Receipt Date: 20150403
  Transmission Date: 20150821
  Serious: Yes (Other)
  Sender: FDA-Public Use
  Company Number: US-PURDUE-USA-2015-0122218

PATIENT
  Sex: Female

DRUGS (1)
  1. BTDS PATCH [Suspect]
     Active Substance: BUPRENORPHINE
     Indication: PAIN
     Route: 062

REACTIONS (3)
  - Fall [Unknown]
  - Upper limb fracture [Unknown]
  - Pain [Unknown]
